FAERS Safety Report 6767776-X (Version None)
Quarter: 2010Q2

REPORT INFORMATION
  Report Type: 
  Country: None (occurrence: None)
  Receive Date: 20100614
  Receipt Date: 20100527
  Transmission Date: 20101027
  Serious: Yes (Life-Threatening, Other)
  Sender: FDA-Public Use
  Company Number: JP-PFIZER INC-2010026668

PATIENT
  Sex: Male
  Weight: 67 kg

DRUGS (3)
  1. CHAMPIX [Suspect]
     Indication: EX-TOBACCO USER
     Dosage: 1 MG, 2X/DAY
     Dates: start: 20091226
  2. CHAMPIX [Suspect]
     Dosage: 2 MG PER DAY
  3. CHAMPIX [Suspect]
     Dosage: 1 MG PER DAY

REACTIONS (4)
  - DIABETES MELLITUS [None]
  - MALAISE [None]
  - RENAL IMPAIRMENT [None]
  - TOBACCO USER [None]
